FAERS Safety Report 8009589-7 (Version None)
Quarter: 2011Q4

REPORT INFORMATION
  Report Type: 
  Country: None (occurrence: None)
  Receive Date: 20111228
  Receipt Date: 20110527
  Transmission Date: 20120403
  Serious: Yes (Hospitalization, Other)
  Sender: FDA-Public Use
  Company Number: PHHY2010US74508

PATIENT
  Sex: Male
  Weight: 57.6 kg

DRUGS (3)
  1. GLEEVEC [Suspect]
     Dosage: 600 MG, UNK
     Route: 048
     Dates: start: 20100918, end: 20101006
  2. TASIGNA [Suspect]
  3. GLEEVEC [Suspect]
     Dosage: 150 MG, BID
     Route: 048
     Dates: start: 20101011

REACTIONS (4)
  - NAUSEA [None]
  - VOMITING [None]
  - DIARRHOEA [None]
  - MIGRAINE [None]
